FAERS Safety Report 25237259 (Version 1)
Quarter: 2025Q2

REPORT INFORMATION
  Report Type: Spontaneous
  Country: CN (occurrence: CN)
  Receive Date: 20250425
  Receipt Date: 20250425
  Transmission Date: 20250716
  Serious: Yes (Hospitalization)
  Sender: BAXTER
  Company Number: None

PATIENT
  Age: 48 Year
  Sex: Female
  Weight: 66 kg

DRUGS (6)
  1. CYCLOPHOSPHAMIDE [Suspect]
     Active Substance: CYCLOPHOSPHAMIDE
     Indication: Breast cancer female
     Dosage: 850MG,QD, INJECTION
     Route: 041
     Dates: start: 20250405, end: 20250405
  2. SODIUM CHLORIDE [Suspect]
     Active Substance: SODIUM CHLORIDE
     Dosage: 90 ML, QD (ONCE DAILY), 0.9 % SODIUM CHLORIDE INJECTION, DRIP RATE: 40-60 DROPS/MIN
     Route: 041
     Dates: start: 20250405, end: 20250405
  3. PIRARUBICIN HYDROCHLORIDE [Suspect]
     Active Substance: PIRARUBICIN HYDROCHLORIDE
     Indication: Breast cancer female
     Dosage: 85.00000 MG, QD
     Route: 041
     Dates: start: 20250405, end: 20250405
  4. PACLITAXEL [Suspect]
     Active Substance: PACLITAXEL
     Indication: Breast cancer female
     Dosage: 450.0000 MG, QD
     Route: 041
     Dates: start: 20250405, end: 20250405
  5. SODIUM CHLORIDE [Suspect]
     Active Substance: SODIUM CHLORIDE
     Indication: Medication dilution
     Dosage: 100.0000 ML, QD (ONCE DAILY), DRIP RATE: 40-60 DROPS/MIN
     Route: 041
     Dates: start: 20250405, end: 20250405
  6. DEXTROSE [Suspect]
     Active Substance: DEXTROSE MONOHYDRATE
     Indication: Medication dilution
     Dosage: 100.0000 ML, QD (ONCE DAILY), DRIP RATE: 40-60 DROPS/MIN
     Route: 041
     Dates: start: 20250405, end: 20250405

REACTIONS (2)
  - White blood cell count decreased [Recovering/Resolving]
  - Neutrophil count decreased [Recovering/Resolving]

NARRATIVE: CASE EVENT DATE: 20250411
